FAERS Safety Report 17043138 (Version 1)
Quarter: 2019Q4

REPORT INFORMATION
  Report Type: Spontaneous
  Country: US (occurrence: US)
  Receive Date: 20191115
  Receipt Date: 20191115
  Transmission Date: 20200122
  Serious: No
  Sender: FDA-Public Use
  Company Number: None

PATIENT
  Age: 62 Year
  Sex: Female
  Weight: 69.3 kg

DRUGS (11)
  1. VIBERZI [Concomitant]
     Active Substance: ELUXADOLINE
  2. PROGESTERONE. [Suspect]
     Active Substance: PROGESTERONE
     Indication: METRORRHAGIA
     Dosage: ?          QUANTITY:1 CAPSULE(S);?
     Route: 048
  3. CALCIUM [Concomitant]
     Active Substance: CALCIUM
  4. GABAPENTINE [Concomitant]
     Active Substance: GABAPENTIN
  5. VITAMIN B [Concomitant]
     Active Substance: VITAMIN B
  6. DIM AND SAW PALMETTO [Concomitant]
  7. BOTOX [Concomitant]
     Active Substance: ONABOTULINUMTOXINA
  8. ANTI DIARRHEA PILLS [Concomitant]
  9. DEXILANT [Concomitant]
     Active Substance: DEXLANSOPRAZOLE
  10. VITAMIN D [Concomitant]
     Active Substance: VITAMIN D NOS
  11. DAILY VITAMIN [Concomitant]
     Active Substance: VITAMINS

REACTIONS (3)
  - Product odour abnormal [None]
  - Diarrhoea [None]
  - Product contamination physical [None]

NARRATIVE: CASE EVENT DATE: 20191108
